FAERS Safety Report 5153672-0 (Version None)
Quarter: 2006Q4

REPORT INFORMATION
  Report Type: 
  Country: None (occurrence: None)
  Receive Date: 20061114
  Receipt Date: 20061101
  Transmission Date: 20070319
  Serious: Yes (Hospitalization)
  Sender: FDA-Public Use
  Company Number: RENA-11949

PATIENT
  Age: 67 Year
  Sex: Male

DRUGS (8)
  1. PHOSBLOCK 250 MG TABLETS [Suspect]
     Indication: HYPERPHOSPHATAEMIA
     Dosage: 0.25 G TID PO
     Route: 048
     Dates: start: 20060907, end: 20061001
  2. AMLODIPINE BESYLATE [Concomitant]
  3. VALSARTAN [Concomitant]
  4. ALLOPURINOL [Concomitant]
  5. REBAMIPIDE [Concomitant]
  6. PRECIPITATED CALCIUM CARBONATE [Concomitant]
  7. FUROSEMIDE [Concomitant]
  8. CALCITRIOL [Concomitant]

REACTIONS (7)
  - DUODENAL ULCER HAEMORRHAGE [None]
  - FLANK PAIN [None]
  - GASTRITIS EROSIVE [None]
  - HAEMODIALYSIS [None]
  - LOSS OF CONSCIOUSNESS [None]
  - NAUSEA [None]
  - VOMITING [None]
